FAERS Safety Report 22330981 (Version 1)
Quarter: 2023Q2

REPORT INFORMATION
  Report Type: Spontaneous
  Country: US (occurrence: None)
  Receive Date: 20230515
  Receipt Date: 20230515
  Transmission Date: 20230722
  Serious: Yes (Hospitalization)
  Sender: FDA-Public Use
  Company Number: None

PATIENT
  Age: 56 Year
  Sex: Female
  Weight: 91.8 kg

DRUGS (1)
  1. RILPIVIRINE [Suspect]
     Active Substance: RILPIVIRINE
     Dosage: 3 ML EVERY 60 DAYS INTRAMUSCULAR
     Route: 030

REACTIONS (1)
  - Cellulitis [None]

NARRATIVE: CASE EVENT DATE: 20230430
